FAERS Safety Report 5973678-9 (Version None)
Quarter: 2008Q4

REPORT INFORMATION
  Report Type: 
  Country: None (occurrence: None)
  Receive Date: 20081201
  Receipt Date: 20081126
  Transmission Date: 20090506
  Serious: Yes (Life-Threatening)
  Sender: FDA-Public Use
  Company Number: JP-ASTRAZENECA-2008AP06629

PATIENT
  Age: 24445 Day
  Sex: Female
  Weight: 59 kg

DRUGS (2)
  1. ARIMIDEX [Suspect]
     Indication: BREAST CANCER
     Route: 048
     Dates: start: 20080118, end: 20080807
  2. OMEPRAL [Suspect]
     Indication: GASTRITIS EROSIVE
     Route: 048
     Dates: start: 20080430, end: 20080514

REACTIONS (1)
  - PANCYTOPENIA [None]
